FAERS Safety Report 6797847-3 (Version None)
Quarter: 2010Q2

REPORT INFORMATION
  Report Type: 
  Country: None (occurrence: None)
  Receive Date: 20100623
  Receipt Date: 20100608
  Transmission Date: 20101027
  Serious: Yes (Hospitalization)
  Sender: FDA-Public Use
  Company Number: 2010SCPR000561

PATIENT
  Age: 19 Year
  Sex: Male

DRUGS (3)
  1. IBUPROFEN [Suspect]
     Indication: TOOTHACHE
     Dosage: 1 DF, QD, ORAL
     Route: 048
     Dates: start: 20100307, end: 20100307
  2. SYNFLEX (NAPROXEN SODIUM) UNKNOWN [Suspect]
     Indication: TOOTHACHE
     Dosage: 275 MG, QD, ORAL
     Route: 048
     Dates: start: 20100308, end: 20100308
  3. KETOPROFEN [Suspect]
     Indication: TOOTHACHE
     Dosage: 80 MG, QD, ORAL
     Route: 048
     Dates: start: 20100306, end: 20100311

REACTIONS (1)
  - RASH PRURITIC [None]
